FAERS Safety Report 21269942 (Version 1)
Quarter: 2022Q3

REPORT INFORMATION
  Report Type: Spontaneous
  Country: US (occurrence: None)
  Receive Date: 20220829
  Receipt Date: 20220829
  Transmission Date: 20221027
  Serious: Yes (Disabling)
  Sender: FDA-Public Use
  Company Number: None

PATIENT
  Age: 52 Year
  Sex: Female
  Weight: 51.75 kg

DRUGS (6)
  1. ATORVASTATIN [Suspect]
     Active Substance: ATORVASTATIN
  2. PROPRANOLOL [Concomitant]
  3. VALACYCLOVIR [Concomitant]
     Active Substance: VALACYCLOVIR HYDROCHLORIDE
  4. Nutofol Women^s Balance [Concomitant]
  5. Estroven Complete [Concomitant]
  6. IBUPROFEN [Concomitant]
     Active Substance: IBUPROFEN

REACTIONS (8)
  - Fatigue [None]
  - Confusional state [None]
  - Pain [None]
  - Insomnia [None]
  - Vision blurred [None]
  - Cognitive disorder [None]
  - Memory impairment [None]
  - Impaired driving ability [None]

NARRATIVE: CASE EVENT DATE: 20220611
